FAERS Safety Report 11836130 (Version 1)
Quarter: 2015Q4

REPORT INFORMATION
  Report Type: Spontaneous
  Country: FR (occurrence: FR)
  Receive Date: 20151215
  Receipt Date: 20151215
  Transmission Date: 20160305
  Serious: Yes (Other)
  Sender: FDA-Public Use
  Company Number: FR-BIOVITRUM-2015FR0744

PATIENT
  Age: 14 Year
  Sex: Female

DRUGS (2)
  1. KINERET [Suspect]
     Active Substance: ANAKINRA
     Indication: JUVENILE IDIOPATHIC ARTHRITIS
  2. CORTICOSTEROIDS [Concomitant]
     Active Substance: CORTICOSTEROID NOS

REACTIONS (8)
  - Off label use [Unknown]
  - Rash generalised [Recovering/Resolving]
  - Hepatocellular injury [Unknown]
  - Eosinophilia [Unknown]
  - Basophil count increased [Unknown]
  - Dermatitis [Recovering/Resolving]
  - Injection site reaction [Unknown]
  - Drug eruption [Recovering/Resolving]
